FAERS Safety Report 20766756 (Version 1)
Quarter: 2022Q2

REPORT INFORMATION
  Report Type: Spontaneous
  Country: FR (occurrence: FR)
  Receive Date: 20220429
  Receipt Date: 20220429
  Transmission Date: 20220720
  Serious: Yes (Hospitalization)
  Sender: FDA-Public Use
  Company Number: None

PATIENT
  Age: 78 Year
  Sex: Female

DRUGS (3)
  1. PAROXETINE [Interacting]
     Active Substance: PAROXETINE
     Indication: Product used for unknown indication
     Dosage: CHLORHYDRATE DE PAROXETINE ANHYDRE , UNIT DOSE : 20 MG , DURATION : 49 DAYS , FREQUENCY TIME : 1 DAY
     Route: 048
     Dates: start: 20211001, end: 20211119
  2. KARDEGIC [Interacting]
     Active Substance: ASPIRIN DL-LYSINE
     Indication: Product used for unknown indication
     Dosage: UNIT DOSE : 75 MG , THERAPY START DATE : ASKU , FREQUENCY TIME : 1 DAYS
     Route: 048
     Dates: end: 20211119
  3. BISOPROLOL FUMARATE [Concomitant]
     Active Substance: BISOPROLOL FUMARATE
     Dosage: BISOPROLOL (FUMARATE ACIDE DE)

REACTIONS (2)
  - Splenic haematoma [Recovering/Resolving]
  - Drug interaction [Unknown]

NARRATIVE: CASE EVENT DATE: 20211111
